FAERS Safety Report 5825571-X (Version None)
Quarter: 2008Q3

REPORT INFORMATION
  Report Type: 
  Country: None (occurrence: None)
  Receive Date: 20080723
  Receipt Date: 20080708
  Transmission Date: 20090109
  Serious: Yes (Hospitalization)
  Sender: FDA-Public Use
  Company Number: 14777

PATIENT
  Age: 43 Year
  Sex: Male

DRUGS (4)
  1. MORPHINE SULFATE [Suspect]
     Indication: ARTHRALGIA
     Dosage: 60MG TWICE DAILY ORAL
     Route: 048
  2. NORCO [Concomitant]
  3. FENTANYL TRANSDERMAL SYSTEM [Concomitant]
  4. PHENERGAN HCL [Concomitant]

REACTIONS (8)
  - AMNESIA [None]
  - GRAND MAL CONVULSION [None]
  - HALLUCINATION [None]
  - MALAISE [None]
  - PALPITATIONS [None]
  - PHARMACEUTICAL PRODUCT COMPLAINT [None]
  - SPINAL FRACTURE [None]
  - TREMOR [None]
